FAERS Safety Report 11279745 (Version 1)
Quarter: 2015Q3

REPORT INFORMATION
  Report Type: Spontaneous
  Country: DE (occurrence: DE)
  Receive Date: 20150717
  Receipt Date: 20150717
  Transmission Date: 20151125
  Serious: Yes (Life-Threatening, Hospitalization, Other)
  Sender: FDA-Public Use
  Company Number: GXKR2015DE003020

PATIENT
  Age: 34 Year
  Sex: Female
  Weight: 52 kg

DRUGS (2)
  1. ISOTRETINOIN [Concomitant]
     Active Substance: ISOTRETINOIN
     Indication: PRODUCT USED FOR UNKNOWN INDICATION
     Dosage: 10 MG, BID
  2. CEFUHEXAL [Suspect]
     Active Substance: CEFUROXIME AXETIL
     Indication: DRUG DISPENSED TO WRONG PATIENT
     Dosage: 2-3 DROPS (ONLY FOR TASTING)
     Route: 048

REACTIONS (15)
  - Hypotension [Recovered/Resolved]
  - Abdominal pain [Recovered/Resolved]
  - Dysphonia [Recovered/Resolved]
  - Vomiting [Recovered/Resolved]
  - Anaphylactic shock [Recovered/Resolved]
  - Eyelid oedema [Recovered/Resolved]
  - Nausea [Recovered/Resolved]
  - Defaecation urgency [Recovered/Resolved]
  - Wrong patient received medication [Recovered/Resolved]
  - Sinus tachycardia [Recovered/Resolved]
  - Respiratory tract oedema [Recovered/Resolved]
  - Syncope [Recovered/Resolved]
  - Dyspnoea [Recovered/Resolved]
  - Pruritus [Recovered/Resolved]
  - Stridor [Recovered/Resolved]

NARRATIVE: CASE EVENT DATE: 20150323
